FAERS Safety Report 5914542-0 (Version None)
Quarter: 2008Q4

REPORT INFORMATION
  Report Type: 
  Country: None (occurrence: None)
  Receive Date: 20081008
  Receipt Date: 20080925
  Transmission Date: 20090506
  Serious: Yes (Death, Hospitalization, Other)
  Sender: FDA-Public Use
  Company Number: 2008BI016636

PATIENT
  Age: 38 Year
  Sex: Female

DRUGS (5)
  1. AVONEX [Suspect]
     Indication: RELAPSING-REMITTING MULTIPLE SCLEROSIS
     Dosage: 30 UG; QW; IM
     Route: 030
     Dates: start: 20070801, end: 20080201
  2. AVONEX [Suspect]
     Indication: RELAPSING-REMITTING MULTIPLE SCLEROSIS
     Dosage: 30 UG; QW; IM
     Route: 030
     Dates: start: 20080401
  3. RIVOTRIL (CON.) [Concomitant]
  4. ANAFRANIL (CON.) [Concomitant]
  5. DIANTALVIC (CON.) [Concomitant]

REACTIONS (6)
  - ASPHYXIA [None]
  - COMPLETED SUICIDE [None]
  - HEPATITIS [None]
  - INCORRECT DOSE ADMINISTERED [None]
  - PAIN [None]
  - PERSONALITY DISORDER [None]
